FAERS Safety Report 4566329-1 (Version None)
Quarter: 2005Q1

REPORT INFORMATION
  Report Type: 
  Country: None (occurrence: None)
  Receive Date: 20050126
  Receipt Date: 20050126
  Transmission Date: 20050727
  Serious: Yes (Hospitalization)
  Sender: FDA-Public Use
  Company Number: None

PATIENT
  Age: 44 Year
  Sex: Female
  Weight: 55.7 kg

DRUGS (11)
  1. STAVUDINE [Suspect]
     Indication: HIV INFECTION
     Dosage: 20MG   DAILY   ORAL
     Route: 048
     Dates: start: 20030401, end: 20030930
  2. ABACAVIR [Concomitant]
  3. NELFINAVIR [Concomitant]
  4. DAPSONE [Concomitant]
  5. EOSOMEPRAZOLE [Concomitant]
  6. PIOGLITAZONE [Concomitant]
  7. LEVOTHYROXINE [Concomitant]
  8. ZINC [Concomitant]
  9. CALCIUM ACETATE [Concomitant]
  10. AMITRIPTYLINE [Concomitant]
  11. QUINAPRIL [Concomitant]

REACTIONS (6)
  - ARTERIOVENOUS SHUNT OPERATION [None]
  - DIARRHOEA HAEMORRHAGIC [None]
  - NAUSEA [None]
  - RHABDOMYOLYSIS [None]
  - TREATMENT NONCOMPLIANCE [None]
  - VOMITING [None]
